FAERS Safety Report 5130696-0 (Version None)
Quarter: 2006Q4

REPORT INFORMATION
  Report Type: 
  Country: None (occurrence: None)
  Receive Date: 20061019
  Receipt Date: 20061004
  Transmission Date: 20070319
  Serious: Yes (Other)
  Sender: FDA-Public Use
  Company Number: US-JNJFOC-20061001396

PATIENT
  Sex: Female

DRUGS (1)
  1. ORTHO MICRONOR [Suspect]
     Indication: CONTRACEPTION

REACTIONS (1)
  - NERVOUS SYSTEM DISORDER [None]
